FAERS Safety Report 5897174-2 (Version None)
Quarter: 2008Q3

REPORT INFORMATION
  Report Type: 
  Country: None (occurrence: None)
  Receive Date: 20080924
  Receipt Date: 20080917
  Transmission Date: 20090109
  Serious: Yes (Life-Threatening)
  Sender: FDA-Public Use
  Company Number: JP-ABBOTT-07P-087-0417435-00

PATIENT
  Sex: Male

DRUGS (7)
  1. KALETRA [Suspect]
     Indication: HIV INFECTION
     Route: 048
     Dates: start: 20070312, end: 20070518
  2. FOSCARNET SODIUM [Suspect]
     Indication: CYTOMEGALOVIRUS CHORIORETINITIS
     Route: 042
     Dates: start: 20070315, end: 20070320
  3. FOSCARNET SODIUM [Suspect]
     Route: 042
     Dates: start: 20070327
  4. ABACAVIR SULFATE/LAMIVUDINE [Concomitant]
     Indication: HIV INFECTION
     Route: 048
     Dates: start: 20070312, end: 20070518
  5. IVH [Concomitant]
     Indication: UNEVALUABLE EVENT
     Route: 042
     Dates: start: 20070215, end: 20070518
  6. VITAMIN B1/AMINO ACIDS [Concomitant]
     Indication: UNEVALUABLE EVENT
     Route: 042
     Dates: start: 20070215, end: 20070518
  7. CIPROFLOXACIN [Concomitant]
     Indication: INFECTION PROPHYLAXIS
     Route: 042
     Dates: start: 20070321, end: 20070518

REACTIONS (4)
  - CYTOMEGALOVIRUS CHORIORETINITIS [None]
  - PLATELET COUNT DECREASED [None]
  - RED BLOOD CELL COUNT DECREASED [None]
  - RENAL DISORDER [None]
